FAERS Safety Report 16807519 (Version 2)
Quarter: 2019Q4

REPORT INFORMATION
  Report Type: Spontaneous
  Country: JP (occurrence: JP)
  Receive Date: 20190913
  Receipt Date: 20191021
  Transmission Date: 20200122
  Serious: Yes (Hospitalization, Other)
  Sender: FDA-Public Use
  Company Number: JP-009507513-1907JPN002483J

PATIENT
  Age: 60 Year
  Sex: Female
  Weight: 53 kg

DRUGS (4)
  1. NERISONA [Concomitant]
     Active Substance: DIFLUCORTOLONE VALERATE
     Dosage: UNK
     Route: 051
     Dates: start: 20190508
  2. KINDAVATE [Concomitant]
     Active Substance: CLOBETASONE BUTYRATE
     Dosage: UNK
     Route: 051
     Dates: start: 20190508
  3. KEYTRUDA [Suspect]
     Active Substance: PEMBROLIZUMAB
     Indication: NON-SMALL CELL LUNG CANCER
     Dosage: 200 MILLIGRAM, Q3W
     Route: 041
     Dates: start: 20190405, end: 20190531
  4. LASIX [Concomitant]
     Active Substance: FUROSEMIDE
     Indication: OEDEMA
     Dosage: 20 MILLIGRAM, QD
     Route: 048
     Dates: start: 20190624

REACTIONS (4)
  - Hypothyroidism [Recovered/Resolved]
  - Cough [Recovered/Resolved]
  - Malignant neoplasm progression [Not Recovered/Not Resolved]
  - Brain oedema [Unknown]

NARRATIVE: CASE EVENT DATE: 201906
